FAERS Safety Report 7499186-4 (Version None)
Quarter: 2011Q2

REPORT INFORMATION
  Report Type: 
  Country: None (occurrence: None)
  Receive Date: 20110524
  Receipt Date: 20110511
  Transmission Date: 20111010
  Serious: Yes (Other)
  Sender: FDA-Public Use
  Company Number: US-ELI_LILLY_AND_COMPANY-US201105004065

PATIENT
  Sex: Female

DRUGS (1)
  1. FORTEO [Suspect]
     Dosage: 20 UG, UNK
     Dates: start: 20070101, end: 20080501

REACTIONS (4)
  - ABDOMINAL PAIN [None]
  - PANCREATITIS [None]
  - LIPASE INCREASED [None]
  - BLOOD AMYLASE INCREASED [None]
